FAERS Safety Report 19313096 (Version 1)
Quarter: 2021Q2

REPORT INFORMATION
  Report Type: Spontaneous
  Country: US (occurrence: US)
  Receive Date: 20210526
  Receipt Date: 20210526
  Transmission Date: 20210717
  Serious: Yes (Death, Hospitalization)
  Sender: FDA-Public Use
  Company Number: None

PATIENT
  Age: 3 Year
  Sex: Male
  Weight: 14.9 kg

DRUGS (2)
  1. DINUTUXIMAB [Suspect]
     Active Substance: DINUTUXIMAB
     Dates: end: 20210503
  2. LEUKINE [Suspect]
     Active Substance: SARGRAMOSTIM
     Dates: end: 20210504

REACTIONS (16)
  - Disease progression [None]
  - Tachypnoea [None]
  - Effusion [None]
  - Blood creatinine increased [None]
  - Ascites [None]
  - Cytomegalovirus infection [None]
  - Oxygen saturation decreased [None]
  - Acute respiratory failure [None]
  - Acute respiratory distress syndrome [None]
  - Hypotension [None]
  - Blood pressure decreased [None]
  - Haemodynamic instability [None]
  - Pneumonia [None]
  - Acidosis [None]
  - Bradycardia [None]
  - Acute kidney injury [None]

NARRATIVE: CASE EVENT DATE: 20210504
